FAERS Safety Report 9387725 (Version 2)
Quarter: 2013Q3

REPORT INFORMATION
  Report Type: Report from Study
  Country: SG (occurrence: SG)
  Receive Date: 20130708
  Receipt Date: 20130718
  Transmission Date: 20140515
  Serious: Yes (Hospitalization)
  Sender: FDA-Public Use
  Company Number: SG-SANOFI-AVENTIS-2013SA066303

PATIENT
  Age: 72 Year
  Sex: Female

DRUGS (13)
  1. OXALIPLATIN [Suspect]
     Indication: GASTROOESOPHAGEAL CANCER
     Route: 042
     Dates: start: 20130529
  2. BLINDED THERAPY [Suspect]
     Indication: GASTROOESOPHAGEAL CANCER
     Route: 042
     Dates: start: 20130529
  3. FOLINIC ACID [Suspect]
     Indication: GASTROOESOPHAGEAL CANCER
     Route: 042
     Dates: start: 20130529
  4. FLUOROURACIL [Suspect]
     Indication: GASTROOESOPHAGEAL CANCER
     Route: 041
     Dates: start: 20130529
  5. FLUOROURACIL [Suspect]
     Indication: GASTROOESOPHAGEAL CANCER
     Route: 040
     Dates: start: 20130529, end: 20130529
  6. ATENOLOL [Concomitant]
     Indication: HYPERTENSION
     Route: 048
  7. OMEPRAZOLE [Concomitant]
     Indication: GASTRIC ULCER
     Route: 048
  8. STEMETIL [Concomitant]
     Indication: HYPERCHOLESTEROLAEMIA
     Route: 048
  9. ONDANSETRON [Concomitant]
     Indication: NAUSEA
     Route: 048
  10. DEXAMETHASONE [Concomitant]
     Indication: PROPHYLACTIC CHEMOTHERAPY
     Route: 048
     Dates: start: 20130529
  11. LACTULOSE [Concomitant]
     Indication: CONSTIPATION
     Route: 048
     Dates: start: 20130517
  12. IMODIUM [Concomitant]
     Indication: CONSTIPATION
     Route: 048
     Dates: start: 20130529
  13. MAXOLON [Concomitant]
     Indication: NAUSEA
     Route: 048
     Dates: start: 20130529

REACTIONS (4)
  - Fall [Unknown]
  - Subarachnoid haemorrhage [Recovered/Resolved]
  - Fall [Unknown]
  - Subdural haemorrhage [Recovered/Resolved]
